FAERS Safety Report 13875103 (Version 1)
Quarter: 2017Q3

REPORT INFORMATION
  Report Type: Spontaneous
  Country: KR (occurrence: KR)
  Receive Date: 20170816
  Receipt Date: 20170816
  Transmission Date: 20171127
  Serious: Yes (Life-Threatening, Hospitalization)
  Sender: FDA-Public Use
  Company Number: KR-LANNETT COMPANY, INC.-KR-2017LAN000968

PATIENT
  Age: 28 Year
  Sex: Male

DRUGS (11)
  1. ARIPIPRAZOLE. [Suspect]
     Active Substance: ARIPIPRAZOLE
     Indication: SCHIZOAFFECTIVE DISORDER
     Dosage: 10 MG, QD
     Route: 065
  2. ARIPIPRAZOLE. [Suspect]
     Active Substance: ARIPIPRAZOLE
     Dosage: 20 MG, QD
     Route: 065
  3. ARIPIPRAZOLE. [Suspect]
     Active Substance: ARIPIPRAZOLE
     Dosage: UNK
     Route: 065
  4. LORAZEPAM. [Concomitant]
     Active Substance: LORAZEPAM
     Dosage: 3 MG, QD
  5. LORAZEPAM. [Concomitant]
     Active Substance: LORAZEPAM
     Dosage: 1 MG, QD
  6. LORAZEPAM. [Concomitant]
     Active Substance: LORAZEPAM
     Dosage: 4 MG, QD
  7. BENZTROPINE [Concomitant]
     Active Substance: BENZTROPINE
     Dosage: 4 MG, QD
  8. BENZTROPINE [Concomitant]
     Active Substance: BENZTROPINE
     Dosage: 3 MG, QD
  9. BENZTROPINE [Concomitant]
     Active Substance: BENZTROPINE
     Dosage: 3 MG, QD
  10. LORAZEPAM. [Concomitant]
     Active Substance: LORAZEPAM
     Indication: PRODUCT USED FOR UNKNOWN INDICATION
     Dosage: UNK
  11. BENZTROPINE [Concomitant]
     Active Substance: BENZTROPINE
     Indication: PRODUCT USED FOR UNKNOWN INDICATION
     Dosage: UNK

REACTIONS (2)
  - Dystonia [Recovering/Resolving]
  - Pneumonia aspiration [Recovering/Resolving]
